FAERS Safety Report 5726356-5 (Version None)
Quarter: 2008Q2

REPORT INFORMATION
  Report Type: 
  Country: None (occurrence: None)
  Receive Date: 20080430
  Receipt Date: 20080421
  Transmission Date: 20081010
  Serious: Yes (Hospitalization)
  Sender: FDA-Public Use
  Company Number: 2008AP001044

PATIENT
  Age: 77 Year
  Sex: Male

DRUGS (1)
  1. CARBAMAZEPINE [Suspect]
     Indication: CONVULSION

REACTIONS (6)
  - DIALYSIS [None]
  - EOSINOPHIL COUNT INCREASED [None]
  - NEPHRITIS INTERSTITIAL [None]
  - RALES [None]
  - RASH MACULO-PAPULAR [None]
  - RENAL FAILURE ACUTE [None]
